FAERS Safety Report 10610149 (Version 1)
Quarter: 2014Q4

REPORT INFORMATION
  Report Type: Spontaneous
  Country: US (occurrence: US)
  Receive Date: 20141126
  Receipt Date: 20141126
  Transmission Date: 20150529
  Serious: Yes (Other)
  Sender: FDA-Public Use
  Company Number: US-MALLINCKRODT-T201305201

PATIENT
  Age: 41 Year
  Sex: Male

DRUGS (2)
  1. GABLOFEN [Suspect]
     Active Substance: BACLOFEN
     Indication: MUSCLE SPASTICITY
     Dosage: 440 MCG/DAY (13.5 MCG BASAL WITH 3 BOLUSES OF 40 MCG DAILY)
     Route: 037
  2. MORPHINE [Suspect]
     Active Substance: MORPHINE
     Indication: PRODUCT USED FOR UNKNOWN INDICATION
     Dosage: 0.33 MG/DAY (0.01 MG BASAL RATE WITH THREE 0.3 MG BOLUSES DAILY)
     Route: 037

REACTIONS (5)
  - Hypothermia [Unknown]
  - Drug effect decreased [Unknown]
  - Device failure [Unknown]
  - Unresponsive to stimuli [Recovering/Resolving]
  - Respiratory disorder [Recovering/Resolving]

NARRATIVE: CASE EVENT DATE: 201312
